FAERS Safety Report 8069942-2 (Version None)
Quarter: 2012Q1

REPORT INFORMATION
  Report Type: 
  Country: None (occurrence: None)
  Receive Date: 20120125
  Receipt Date: 20120118
  Transmission Date: 20120608
  Serious: Yes (Hospitalization)
  Sender: FDA-Public Use
  Company Number: US-COVIDIEN/TYCO HEALTHCARE/MALLINCKRODT-T201102817

PATIENT
  Sex: Female

DRUGS (1)
  1. OPTIRAY 160 [Suspect]
     Indication: COMPUTERISED TOMOGRAM
     Dosage: UNK ML, SINGLE
     Route: 042
     Dates: start: 20111201, end: 20111201

REACTIONS (3)
  - DRUG ADMINISTRATION ERROR [None]
  - AIR EMBOLISM [None]
  - DYSPNOEA [None]
